FAERS Safety Report 19371791 (Version 1)
Quarter: 2021Q2

REPORT INFORMATION
  Report Type: Spontaneous
  Country: FR (occurrence: FR)
  Receive Date: 20210604
  Receipt Date: 20210604
  Transmission Date: 20210717
  Serious: Yes (Hospitalization)
  Sender: FDA-Public Use
  Company Number: FR-TEVA-2021-FR-1918354

PATIENT
  Age: 50 Year
  Sex: Female
  Weight: 39.4 kg

DRUGS (3)
  1. OMEPRAZOLE. [Suspect]
     Active Substance: OMEPRAZOLE
     Indication: HAEMATEMESIS
     Dosage: 80MG
     Route: 041
     Dates: start: 20210402, end: 20210403
  2. PANTOPRAZOLE [Suspect]
     Active Substance: PANTOPRAZOLE
     Indication: HAEMATEMESIS
     Dosage: 40MG
     Route: 041
     Dates: start: 20210404, end: 20210412
  3. LANSOPRAZOLE. [Suspect]
     Active Substance: LANSOPRAZOLE
     Indication: HAEMATEMESIS
     Dosage: 15MG
     Route: 048
     Dates: start: 20210413, end: 20210429

REACTIONS (1)
  - Neutropenia [Recovered/Resolved]

NARRATIVE: CASE EVENT DATE: 20210417
